FAERS Safety Report 5195481-2 (Version None)
Quarter: 2006Q4

REPORT INFORMATION
  Report Type: 
  Country: None (occurrence: None)
  Receive Date: 20061222
  Receipt Date: 20061222
  Transmission Date: 20070319
  Serious: Yes (Hospitalization)
  Sender: FDA-Public Use
  Company Number: None

PATIENT
  Age: 16 Year
  Sex: Male
  Weight: 64 kg

DRUGS (1)
  1. AZITHROMYCIN [Suspect]
     Indication: TONSILLITIS STREPTOCOCCAL
     Dosage: 500 MGS 1/DY PO
     Route: 048
     Dates: start: 20061126, end: 20061128

REACTIONS (12)
  - AMNESIA [None]
  - AURA [None]
  - COMPLEX PARTIAL SEIZURES [None]
  - DYSGEUSIA [None]
  - HALLUCINATION, TACTILE [None]
  - HALLUCINATIONS, MIXED [None]
  - LOSS OF CONSCIOUSNESS [None]
  - MOVEMENT DISORDER [None]
  - NEUROLOGICAL SYMPTOM [None]
  - PHOTOPSIA [None]
  - POSTICTAL STATE [None]
  - PSYCHIATRIC SYMPTOM [None]
